FAERS Safety Report 7131507-4 (Version None)
Quarter: 2010Q4

REPORT INFORMATION
  Report Type: 
  Country: None (occurrence: None)
  Receive Date: 20101201
  Receipt Date: 20101126
  Transmission Date: 20110411
  Serious: Yes (Other)
  Sender: FDA-Public Use
  Company Number: GR-PFIZER INC-2010125230

PATIENT
  Age: 27 Year
  Sex: Female

DRUGS (2)
  1. GEODON [Suspect]
     Dosage: 80 MG, UNK
     Route: 048
     Dates: start: 20100801
  2. AKINETON [Suspect]

REACTIONS (3)
  - MENSTRUATION DELAYED [None]
  - PARKINSONISM [None]
  - VISION BLURRED [None]
